FAERS Safety Report 9198945 (Version 2)
Quarter: 2014Q3

REPORT INFORMATION
  Report Type: Report from Study
  Country: FR (occurrence: FR)
  Receive Date: 20130329
  Receipt Date: 20140919
  Transmission Date: 20150326
  Serious: Yes (Hospitalization)
  Sender: FDA-Public Use
  Company Number: FR-009507513-1211FRA005868

PATIENT
  Age: 59 Year
  Sex: Male
  Weight: 110 kg

DRUGS (13)
  1. NOVOMIX [Concomitant]
     Active Substance: INSULIN ASPART
     Indication: DIABETES MELLITUS
     Dosage: 70 IU, QD
     Route: 058
     Dates: start: 19961025, end: 20121002
  2. ISENTRESS [Suspect]
     Active Substance: RALTEGRAVIR POTASSIUM
     Indication: HIV INFECTION
     Dosage: 400 MG, BID
     Route: 048
     Dates: start: 20120928
  3. CELLCEPT [Concomitant]
     Active Substance: MYCOPHENOLATE MOFETIL\MYCOPHENOLATE MOFETIL HYDROCHLORIDE
     Dosage: QD
     Dates: start: 20121015
  4. CORTANCYL [Suspect]
     Active Substance: PREDNISONE
     Dosage: 15 MG, QD
     Route: 048
     Dates: start: 20121011
  5. PROGRAF [Suspect]
     Active Substance: TACROLIMUS\TACROLIMUS ANHYDROUS
     Indication: IMMUNOSUPPRESSANT DRUG THERAPY
     Dosage: 6 MG, BID
     Route: 048
     Dates: start: 20120930
  6. PROGRAF [Suspect]
     Active Substance: TACROLIMUS\TACROLIMUS ANHYDROUS
     Dosage: UNK UNK, BID
     Route: 048
     Dates: start: 20130109
  7. KIVEXA [Concomitant]
     Active Substance: ABACAVIR SULFATE\LAMIVUDINE
     Indication: HIV INFECTION
     Dosage: 1 DF, QD
     Route: 048
     Dates: start: 20120928
  8. CORTANCYL [Suspect]
     Active Substance: PREDNISONE
     Indication: IMMUNOSUPPRESSANT DRUG THERAPY
     Dosage: UNK, QD
     Route: 048
     Dates: start: 20120928, end: 20121010
  9. CORTANCYL [Suspect]
     Active Substance: PREDNISONE
     Dosage: UNK UNK, QD
     Dates: start: 20130109
  10. BACTRIM [Concomitant]
     Active Substance: SULFAMETHOXAZOLE\TRIMETHOPRIM
     Indication: ANTI-INFECTIVE THERAPY
     Dosage: UNK, TIW
     Dates: start: 19961115
  11. BISOPROLOL [Concomitant]
     Active Substance: BISOPROLOL
     Indication: ANTI-INFECTIVE THERAPY
     Dosage: QD
     Dates: start: 201210
  12. CELLCEPT [Concomitant]
     Active Substance: MYCOPHENOLATE MOFETIL\MYCOPHENOLATE MOFETIL HYDROCHLORIDE
     Indication: IMMUNOSUPPRESSANT DRUG THERAPY
     Dosage: 500
     Dates: start: 20120926
  13. ZELITREX [Concomitant]
     Active Substance: VALACYCLOVIR HYDROCHLORIDE
     Indication: ANTI-INFECTIVE THERAPY
     Dosage: UNK
     Dates: start: 20121001

REACTIONS (2)
  - Pneumonia [Recovered/Resolved]
  - Diabetes mellitus inadequate control [Recovering/Resolving]

NARRATIVE: CASE EVENT DATE: 20121008
